FAERS Safety Report 8491570-5 (Version None)
Quarter: 2012Q3

REPORT INFORMATION
  Report Type: 
  Country: None (occurrence: None)
  Receive Date: 20120706
  Receipt Date: 20120626
  Transmission Date: 20120928
  Serious: Yes (Other)
  Sender: FDA-Public Use
  Company Number: US-JNJFOC-20120613578

PATIENT
  Sex: Female
  Weight: 79.38 kg

DRUGS (8)
  1. DURAGESIC-100 [Suspect]
     Route: 062
     Dates: start: 20120501
  2. DURAGESIC-100 [Suspect]
     Route: 062
     Dates: start: 20120501
  3. DURAGESIC-100 [Suspect]
     Indication: CERVICAL SPINAL STENOSIS
     Route: 062
     Dates: start: 20120501
  4. DURAGESIC-100 [Suspect]
     Route: 062
     Dates: start: 20120401, end: 20120501
  5. DURAGESIC-100 [Suspect]
     Indication: INTERVERTEBRAL DISC PROTRUSION
     Route: 062
     Dates: start: 20120501
  6. DURAGESIC-100 [Suspect]
     Route: 062
     Dates: start: 20120401, end: 20120501
  7. DURAGESIC-100 [Suspect]
     Indication: AMYOTROPHIC LATERAL SCLEROSIS
     Route: 062
     Dates: start: 20120401, end: 20120501
  8. DURAGESIC-100 [Suspect]
     Indication: SPINAL OSTEOARTHRITIS
     Route: 062
     Dates: start: 20120401, end: 20120501

REACTIONS (4)
  - WRONG TECHNIQUE IN DRUG USAGE PROCESS [None]
  - NAUSEA [None]
  - APPLICATION SITE PAIN [None]
  - ABNORMAL LOSS OF WEIGHT [None]
